FAERS Safety Report 12256670 (Version 1)
Quarter: 2016Q2

REPORT INFORMATION
  Report Type: Spontaneous
  Country: US (occurrence: US)
  Receive Date: 20160412
  Receipt Date: 20160412
  Transmission Date: 20160815
  Serious: Yes (Other)
  Sender: FDA-Public Use
  Company Number: US-LUNDBECK-DKLU2012222

PATIENT
  Sex: Female

DRUGS (4)
  1. FIBERMED [Concomitant]
     Indication: PRODUCT USED FOR UNKNOWN INDICATION
     Route: 065
  2. DEPAKOTE [Concomitant]
     Active Substance: DIVALPROEX SODIUM
     Indication: PRODUCT USED FOR UNKNOWN INDICATION
     Route: 065
  3. ONFI [Suspect]
     Active Substance: CLOBAZAM
     Indication: EPILEPSY
  4. ONFI [Suspect]
     Active Substance: CLOBAZAM
     Indication: RETT SYNDROME
     Route: 065
     Dates: start: 20160226, end: 20160325

REACTIONS (6)
  - Increased bronchial secretion [Unknown]
  - Gait disturbance [Unknown]
  - Somnolence [Unknown]
  - Decreased appetite [Unknown]
  - Seizure [Unknown]
  - Activities of daily living impaired [Unknown]
